FAERS Safety Report 18479821 (Version 1)
Quarter: 2020Q4

REPORT INFORMATION
  Report Type: Spontaneous
  Country: US (occurrence: US)
  Receive Date: 20201106
  Receipt Date: 20201106
  Transmission Date: 20210114
  Serious: No
  Sender: FDA-Public Use
  Company Number: None

PATIENT
  Age: 69 Year
  Sex: Male

DRUGS (1)
  1. PAROEX [Suspect]
     Active Substance: CHLORHEXIDINE GLUCONATE

REACTIONS (4)
  - Recalled product administered [None]
  - Product contamination [None]
  - Device defective [None]
  - Bacterial infection [None]

NARRATIVE: CASE EVENT DATE: 20200903
